FAERS Safety Report 5251904-1 (Version None)
Quarter: 2007Q1

REPORT INFORMATION
  Report Type: 
  Country: None (occurrence: None)
  Receive Date: 20070223
  Receipt Date: 20070214
  Transmission Date: 20070707
  Serious: Yes (Hospitalization)
  Sender: FDA-Public Use
  Company Number: 2007BI001136

PATIENT
  Age: 40 Year
  Sex: Female

DRUGS (10)
  1. NATALIZUMAB [Suspect]
     Indication: MULTIPLE SCLEROSIS
     Dosage: 300 MG; QW; IV
     Route: 042
     Dates: start: 20061129
  2. MACROBID [Concomitant]
  3. TIZANIDINE HCL [Concomitant]
  4. TRAZODONE HCL [Concomitant]
  5. FOLIC ACID [Concomitant]
  6. WARFARIN SODIUM [Concomitant]
  7. LEXAPRO [Concomitant]
  8. DARVOCET-N 100 [Concomitant]
  9. CIPRO [Concomitant]
  10. ROCEPHIN [Concomitant]

REACTIONS (4)
  - FALL [None]
  - HEAD INJURY [None]
  - HEMIPLEGIA [None]
  - SUBDURAL HAEMATOMA [None]
